FAERS Safety Report 16791121 (Version 1)
Quarter: 2019Q3

REPORT INFORMATION
  Report Type: Spontaneous
  Country: US (occurrence: US)
  Receive Date: 20190910
  Receipt Date: 20190910
  Transmission Date: 20191005
  Serious: No
  Sender: FDA-Public Use
  Company Number: US-PERRIGO-19US005852

PATIENT
  Age: 44 Year
  Sex: Female
  Weight: 68.03 kg

DRUGS (6)
  1. SPIRONOLACTONE. [Concomitant]
     Active Substance: SPIRONOLACTONE
     Indication: HORMONE REPLACEMENT THERAPY
     Dosage: 25 MG, BID
     Route: 065
     Dates: start: 201801
  2. NORETHINDRONE                      /00044901/ [Concomitant]
     Active Substance: NORETHINDRONE
     Indication: HORMONE REPLACEMENT THERAPY
     Dosage: 2.5 MG
     Route: 065
     Dates: start: 2018
  3. EVAMIST [Suspect]
     Active Substance: ESTRADIOL
     Indication: HORMONE REPLACEMENT THERAPY
     Dosage: 1.53 MG TO 3.06 MG, QD
     Route: 062
     Dates: start: 2018, end: 20190413
  4. PROZAC [Concomitant]
     Active Substance: FLUOXETINE HYDROCHLORIDE
     Indication: DEPRESSION
     Dosage: 25 MG, BID
     Route: 065
     Dates: start: 201811
  5. CLONAZEPAM. [Concomitant]
     Active Substance: CLONAZEPAM
     Indication: ANXIETY
     Dosage: 0.5 MG
     Route: 065
     Dates: start: 201811
  6. EVAMIST [Suspect]
     Active Substance: ESTRADIOL
     Dosage: (APPROX. 1/2 SPRAY COMES OUT EACH TIME) UP TO 2 SPRAYS, QD
     Route: 062
     Dates: start: 20190414, end: 20190508

REACTIONS (3)
  - Hot flush [Not Recovered/Not Resolved]
  - Underdose [Recovered/Resolved]
  - Mood altered [Not Recovered/Not Resolved]

NARRATIVE: CASE EVENT DATE: 20190414
